FAERS Safety Report 8484199-6 (Version None)
Quarter: 2012Q2

REPORT INFORMATION
  Report Type: 
  Country: None (occurrence: None)
  Receive Date: 20120625
  Receipt Date: 20120608
  Transmission Date: 20120825
  Serious: Yes (Hospitalization, Other)
  Sender: FDA-Public Use
  Company Number: 2012-000141

PATIENT
  Age: 67 Year
  Sex: Female

DRUGS (16)
  1. ZOCOR [Concomitant]
  2. FOSAMAX [Suspect]
     Indication: OSTEOPOROSIS
     Dosage: ORAL, 70 MG ONCE WEEKLY, ORAL
     Route: 048
     Dates: start: 20061122, end: 20061208
  3. FOSAMAX [Suspect]
     Indication: OSTEOPOROSIS
     Dosage: ORAL, 70 MG ONCE WEEKLY, ORAL
     Route: 048
     Dates: start: 20050211
  4. MUCINEX [Concomitant]
  5. DIOVAN [Concomitant]
  6. FERROUS SULFATE TAB [Concomitant]
  7. PROTONIX [Concomitant]
  8. FOSAMAX PLUS D [Suspect]
     Dosage: 70/2800, ORAL
     Route: 048
     Dates: start: 20070226, end: 20071003
  9. ZOLOFT [Concomitant]
  10. ALENDRONATE SODIUM [Suspect]
     Dosage: 70 MG, 1/WEEK, ORAL, 70 MG, 1/WEEK, ORAL
     Route: 048
     Dates: start: 20100801, end: 20111201
  11. ALENDRONATE SODIUM [Suspect]
     Dosage: 70 MG, 1/WEEK, ORAL, 70 MG, 1/WEEK, ORAL
     Route: 048
     Dates: start: 20090301, end: 20091001
  12. ALLEGRA [Concomitant]
  13. ASMANEX TWISTHALER [Concomitant]
  14. ACTONEL [Suspect]
     Dosage: 35 MG ONCE MONTHLY, ORAL
     Route: 048
     Dates: start: 20090301
  15. SYNTHROID [Concomitant]
  16. ZETIA [Concomitant]

REACTIONS (13)
  - ABDOMINAL DISCOMFORT [None]
  - SYNCOPE [None]
  - DEVICE BREAKAGE [None]
  - KNEE ARTHROPLASTY [None]
  - STAPHYLOCOCCAL OSTEOMYELITIS [None]
  - PATHOLOGICAL FRACTURE [None]
  - GAIT DISTURBANCE [None]
  - TRANSPLANT [None]
  - FEMUR FRACTURE [None]
  - FRACTURE DISPLACEMENT [None]
  - FRACTURE NONUNION [None]
  - SURGICAL FAILURE [None]
  - FALL [None]
